FAERS Safety Report 13402889 (Version 1)
Quarter: 2017Q2

REPORT INFORMATION
  Report Type: Spontaneous
  Country: US (occurrence: US)
  Receive Date: 20170404
  Receipt Date: 20170404
  Transmission Date: 20170830
  Serious: Yes (Other)
  Sender: FDA-Public Use
  Company Number: US-ROCHE-1771539

PATIENT
  Sex: Male

DRUGS (10)
  1. CELEBREX [Concomitant]
     Active Substance: CELECOXIB
  2. FOLINIC ACID [Concomitant]
     Active Substance: LEUCOVORIN
  3. XELODA [Suspect]
     Active Substance: CAPECITABINE
     Indication: PRODUCT USED FOR UNKNOWN INDICATION
     Route: 065
  4. IRINOTECAN [Concomitant]
     Active Substance: IRINOTECAN
  5. LONSURF [Concomitant]
     Active Substance: TIPIRACIL HYDROCHLORIDE\TRIFLURIDINE
  6. ERBITUX [Concomitant]
     Active Substance: CETUXIMAB
     Dosage: FOR 8 CYCLES
     Route: 065
  7. AVASTIN [Suspect]
     Active Substance: BEVACIZUMAB
     Indication: PRODUCT USED FOR UNKNOWN INDICATION
     Route: 065
  8. STIVARGA [Concomitant]
     Active Substance: REGORAFENIB
  9. 5-FLUOROURACIL [Concomitant]
     Active Substance: FLUOROURACIL
  10. OXALIPLATIN. [Concomitant]
     Active Substance: OXALIPLATIN

REACTIONS (1)
  - Enterocolitis haemorrhagic [Unknown]
